FAERS Safety Report 4564940-5 (Version None)
Quarter: 2005Q1

REPORT INFORMATION
  Report Type: 
  Country: None (occurrence: None)
  Receive Date: 20050131
  Receipt Date: 20050119
  Transmission Date: 20050727
  Serious: Yes (Hospitalization)
  Sender: FDA-Public Use
  Company Number: FR-JNJFOC-20050102901

PATIENT
  Age: 34 Year
  Sex: Male

DRUGS (1)
  1. INFLIXIMAB [Suspect]
     Indication: CROHN'S DISEASE
     Dosage: 2 INFUSIONS
     Route: 042

REACTIONS (5)
  - EPILEPSY [None]
  - LISTERIA ENCEPHALITIS [None]
  - MEMORY IMPAIRMENT [None]
  - MENINGITIS LISTERIA [None]
  - SEPSIS [None]
